FAERS Safety Report 11227302 (Version 1)
Quarter: 2015Q2

REPORT INFORMATION
  Report Type: Report from Study
  Country: KR (occurrence: KR)
  Receive Date: 20150630
  Receipt Date: 20150630
  Transmission Date: 20150821
  Serious: Yes (Hospitalization)
  Sender: FDA-Public Use
  Company Number: KR-ROCHE-615934

PATIENT
  Age: 59 Year
  Sex: Male
  Weight: 71.6 kg

DRUGS (39)
  1. RITUXIMAB [Suspect]
     Active Substance: RITUXIMAB
     Dosage: 6TH CYCLE
     Route: 042
     Dates: start: 20090128, end: 20090201
  2. MOSAPRIDE CITRATE [Concomitant]
     Active Substance: MOSAPRIDE CITRATE
     Route: 065
  3. BEVACIZUMAB [Suspect]
     Active Substance: BEVACIZUMAB
     Route: 042
     Dates: start: 20081126, end: 20090128
  4. RITUXIMAB [Suspect]
     Active Substance: RITUXIMAB
     Indication: DIFFUSE LARGE B-CELL LYMPHOMA
     Dosage: DOSAGE FORM:INFUSION.TEMPORARILY INTERRUPTED.
     Route: 042
     Dates: start: 20081003, end: 20081101
  5. DOXORUBICIN [Suspect]
     Active Substance: DOXORUBICIN
     Indication: DIFFUSE LARGE B-CELL LYMPHOMA
     Dosage: ON DAY 1, TEMPORARIRY INTERRUPTED
     Route: 042
     Dates: start: 20081003, end: 20081101
  6. DOXORUBICIN [Suspect]
     Active Substance: DOXORUBICIN
     Dosage: 7TH CYCLE
     Route: 042
  7. CYCLOPHOSPHAMIDE. [Suspect]
     Active Substance: CYCLOPHOSPHAMIDE
     Indication: DIFFUSE LARGE B-CELL LYMPHOMA
     Dosage: DOSAGE FORM:INFUSION.TEMPORARILY INTERRUPTED.
     Route: 042
     Dates: start: 20081002, end: 20081101
  8. CYCLOPHOSPHAMIDE. [Suspect]
     Active Substance: CYCLOPHOSPHAMIDE
     Dosage: FREQUENCY AS PER PROTOCOL
     Route: 042
     Dates: start: 20081126, end: 20090128
  9. CYCLOPHOSPHAMIDE. [Suspect]
     Active Substance: CYCLOPHOSPHAMIDE
     Route: 042
  10. VINCRISTINE [Suspect]
     Active Substance: VINCRISTINE
     Dosage: FREQUENCY AS PER PROTOCOL
     Route: 042
     Dates: start: 20081126, end: 20090128
  11. VINCRISTINE [Suspect]
     Active Substance: VINCRISTINE
     Route: 042
  12. BEVACIZUMAB [Suspect]
     Active Substance: BEVACIZUMAB
     Dosage: 7TH CYCLE
     Route: 042
  13. RITUXIMAB [Suspect]
     Active Substance: RITUXIMAB
     Route: 042
  14. VINCRISTINE [Suspect]
     Active Substance: VINCRISTINE
     Dosage: 8TH CYCLE
     Route: 042
  15. GLIMEPIRIDE. [Concomitant]
     Active Substance: GLIMEPIRIDE
     Dosage: DRUG NAME: GLYMEPIRIDE
     Route: 065
  16. METRONIDAZOLE. [Concomitant]
     Active Substance: METRONIDAZOLE
     Route: 065
  17. DOXORUBICIN [Suspect]
     Active Substance: DOXORUBICIN
     Dosage: 6TH CYCLE
     Route: 042
     Dates: start: 20090128, end: 20090201
  18. VINCRISTINE [Suspect]
     Active Substance: VINCRISTINE
     Indication: DIFFUSE LARGE B-CELL LYMPHOMA
     Dosage: DOSAGE FORM:INFUSION.TEMPORARILY INTERRUPTED.
     Route: 042
     Dates: start: 20081002, end: 20081101
  19. VINCRISTINE [Suspect]
     Active Substance: VINCRISTINE
     Dosage: 7TH CYCLE
     Route: 042
  20. PREDNISOLONE. [Suspect]
     Active Substance: PREDNISOLONE
     Dosage: FREQUENCY: 2, AS PER PROTOCOL 100 MG ON DAY 1-5.
     Route: 048
     Dates: start: 20081126, end: 20090201
  21. PREDNISOLONE. [Suspect]
     Active Substance: PREDNISOLONE
     Dosage: 7TH CYCLE
     Route: 048
  22. BEVACIZUMAB [Suspect]
     Active Substance: BEVACIZUMAB
     Dosage: 6TH CYCLE
     Route: 042
     Dates: start: 20090128, end: 20090201
  23. RITUXIMAB [Suspect]
     Active Substance: RITUXIMAB
     Dosage: FREQUENCY AS PER PROTOCOL
     Route: 042
     Dates: start: 20081126, end: 20090128
  24. DOXORUBICIN [Suspect]
     Active Substance: DOXORUBICIN
     Route: 042
  25. DOXORUBICIN [Suspect]
     Active Substance: DOXORUBICIN
     Dosage: 8TH CYCLE
     Route: 042
  26. PREDNISOLONE. [Suspect]
     Active Substance: PREDNISOLONE
     Indication: DIFFUSE LARGE B-CELL LYMPHOMA
     Dosage: TEMPORARILY INTERRUPTED.
     Route: 048
     Dates: start: 20081002, end: 20081105
  27. PREDNISOLONE. [Suspect]
     Active Substance: PREDNISOLONE
     Dosage: 8TH CYCLE
     Route: 048
  28. MAGNESIUM OXIDE. [Concomitant]
     Active Substance: MAGNESIUM OXIDE
     Route: 065
     Dates: start: 20090220, end: 20090224
  29. BEVACIZUMAB [Suspect]
     Active Substance: BEVACIZUMAB
     Dosage: TEMPORARILY INTERUPTED
     Route: 042
  30. RITUXIMAB [Suspect]
     Active Substance: RITUXIMAB
     Dosage: 7TH CYCLE
     Route: 042
  31. CYCLOPHOSPHAMIDE. [Suspect]
     Active Substance: CYCLOPHOSPHAMIDE
     Dosage: 8TH CYCLE
     Route: 042
  32. PREDNISOLONE. [Suspect]
     Active Substance: PREDNISOLONE
     Route: 048
  33. FAMOTIDINE. [Concomitant]
     Active Substance: FAMOTIDINE
     Route: 065
  34. RITUXIMAB [Suspect]
     Active Substance: RITUXIMAB
     Dosage: 8TH CYCLE
     Route: 042
  35. DOXORUBICIN [Suspect]
     Active Substance: DOXORUBICIN
     Dosage: FREQUENCY AS PER PROTOCOL
     Route: 042
     Dates: start: 20081126, end: 20090128
  36. CYCLOPHOSPHAMIDE. [Suspect]
     Active Substance: CYCLOPHOSPHAMIDE
     Dosage: 7TH CYCLE
     Route: 042
  37. VINCRISTINE [Suspect]
     Active Substance: VINCRISTINE
     Dosage: 6TH CYCLE
     Route: 042
     Dates: start: 20090128, end: 20090201
  38. ATENOLOL. [Concomitant]
     Active Substance: ATENOLOL
     Route: 065
  39. BEVACIZUMAB [Suspect]
     Active Substance: BEVACIZUMAB
     Indication: DIFFUSE LARGE B-CELL LYMPHOMA
     Dosage: DOSE BLINDED, FORM REPORTED AS INFUSION.TEMPORARILY INTERRUPTED
     Route: 042
     Dates: start: 20081002, end: 20081101

REACTIONS (4)
  - Febrile neutropenia [Recovered/Resolved]
  - Alanine aminotransferase increased [Recovered/Resolved]
  - Aspartate aminotransferase increased [Recovered/Resolved]
  - Anal abscess [Recovered/Resolved]

NARRATIVE: CASE EVENT DATE: 20090218
